FAERS Safety Report 5262130-4 (Version None)
Quarter: 2007Q1

REPORT INFORMATION
  Report Type: 
  Country: None (occurrence: None)
  Receive Date: 20070311
  Receipt Date: 20070228
  Transmission Date: 20070707
  Serious: No
  Sender: FDA-Public Use
  Company Number: 2006UW10828

PATIENT
  Age: 46 Year
  Sex: Female
  Weight: 88.6 kg

DRUGS (3)
  1. SEROQUEL [Suspect]
     Indication: SCHIZOPHRENIA
     Dosage: DOSE 400-500 MG
     Route: 048
     Dates: start: 19991124, end: 20030101
  2. SEROQUEL [Suspect]
     Indication: ANXIETY
     Dosage: DOSE 400-500 MG
     Route: 048
     Dates: start: 19991124, end: 20030101
  3. SEROQUEL [Suspect]
     Indication: DEPRESSION
     Dosage: DOSE 400-500 MG
     Route: 048
     Dates: start: 19991124, end: 20030101

REACTIONS (1)
  - DIABETES MELLITUS [None]
